FAERS Safety Report 8172691-3 (Version None)
Quarter: 2012Q1

REPORT INFORMATION
  Report Type: 
  Country: None (occurrence: None)
  Receive Date: 20120229
  Receipt Date: 20120216
  Transmission Date: 20120608
  Serious: Yes (Other)
  Sender: FDA-Public Use
  Company Number: NL-AMGEN-NLDSP2012011622

PATIENT
  Age: 53 Year
  Sex: Female

DRUGS (3)
  1. METHOTREXATE [Concomitant]
     Dosage: UNK UNK, UNK
  2. FOLIC ACID [Concomitant]
     Dosage: UNK UNK, UNK
  3. ENBREL [Suspect]
     Indication: RHEUMATOID ARTHRITIS
     Dosage: 50 MG, WEEKLY
     Dates: start: 20120101

REACTIONS (5)
  - OSTEOMYELITIS [None]
  - RHEUMATOID ARTHRITIS [None]
  - RESPIRATORY TRACT INFECTION [None]
  - SINUSITIS [None]
  - PYREXIA [None]
